FAERS Safety Report 23338856 (Version 1)
Quarter: 2023Q4

REPORT INFORMATION
  Report Type: Spontaneous
  Country: GB (occurrence: GB)
  Receive Date: 20231226
  Receipt Date: 20231226
  Transmission Date: 20240110
  Serious: Yes (Other)
  Sender: FDA-Public Use
  Company Number: None

PATIENT
  Age: 37 Year
  Sex: Male
  Weight: 67 kg

DRUGS (4)
  1. MIRTAZAPINE [Suspect]
     Active Substance: MIRTAZAPINE
     Indication: Ill-defined disorder
     Dosage: UNK
     Dates: start: 20231220
  2. KETOCONAZOLE [Concomitant]
     Active Substance: KETOCONAZOLE
     Indication: Ill-defined disorder
     Dosage: APPLY TWICE DAILY TO THE AFFECTED AREAS
     Dates: start: 20231122, end: 20231220
  3. LYMECYCLINE [Concomitant]
     Active Substance: LYMECYCLINE
     Indication: Ill-defined disorder
     Dosage: TAKE ONE DAILY AS DIRECTED
     Dates: start: 20231004, end: 20231101
  4. MIRTAZAPINE [Concomitant]
     Active Substance: MIRTAZAPINE
     Indication: Ill-defined disorder
     Dosage: TAKE ONE TABLET DAILY FOR MOOD
     Dates: start: 20231122, end: 20231206

REACTIONS (1)
  - Hypersensitivity [Recovering/Resolving]

NARRATIVE: CASE EVENT DATE: 20231220
